FAERS Safety Report 9617667 (Version 3)
Quarter: 2013Q4

REPORT INFORMATION
  Report Type: Spontaneous
  Country: US (occurrence: US)
  Receive Date: 20131011
  Receipt Date: 20131112
  Transmission Date: 20140711
  Serious: Yes (Hospitalization)
  Sender: FDA-Public Use
  Company Number: US-ELI_LILLY_AND_COMPANY-US201310001684

PATIENT
  Age: 66 Year
  Sex: Female
  Weight: 60.77 kg

DRUGS (15)
  1. HUMATROPE [Suspect]
     Indication: ADRENAL INSUFFICIENCY
     Dosage: 0.2 MG, QD
     Route: 058
     Dates: start: 20110111, end: 20131003
  2. HUMATROPE [Suspect]
     Indication: BONE DISORDER
     Dosage: 0.2 MG, QD
     Route: 058
     Dates: start: 201101, end: 20131003
  3. HUMATROPE [Suspect]
     Indication: OSTEOPOROSIS
  4. HUMATROPE [Suspect]
     Indication: HYPOPITUITARISM
  5. CORTEF                             /00028611/ [Concomitant]
     Indication: HYPOPITUITARISM
  6. SYNTHROID [Concomitant]
  7. SOTALOL [Concomitant]
     Indication: ATRIAL FIBRILLATION
  8. COUMADIN                           /00014802/ [Concomitant]
  9. HYDROCHLOROTHIAZIDE [Concomitant]
  10. CRESTOR [Concomitant]
     Indication: BLOOD CHOLESTEROL INCREASED
  11. KLOR-CON [Concomitant]
     Indication: BLOOD POTASSIUM DECREASED
  12. METOPROLOL [Concomitant]
     Indication: HYPERTENSION
  13. CITRACAL                           /00751520/ [Concomitant]
  14. OCUVITE                            /01053801/ [Concomitant]
  15. VITAMIN D                          /00107901/ [Concomitant]

REACTIONS (10)
  - Fall [Recovered/Resolved]
  - Head injury [Unknown]
  - Tension headache [Unknown]
  - Muscle spasms [Unknown]
  - Fear [Unknown]
  - Heart rate decreased [Unknown]
  - Dyspnoea [Unknown]
  - Fatigue [Unknown]
  - Anxiety [Unknown]
  - Osteoarthritis [Unknown]
